FAERS Safety Report 9913159 (Version 1)
Quarter: 2014Q1

REPORT INFORMATION
  Report Type: Spontaneous
  Country: IN (occurrence: None)
  Receive Date: 20140212
  Receipt Date: 20140212
  Transmission Date: 20141002
  Serious: Yes (Other)
  Sender: FDA-Public Use
  Company Number: FK201400394

PATIENT
  Age: 49 Year
  Sex: Male

DRUGS (2)
  1. IRINOTECAN [Suspect]
     Indication: SMALL CELL LUNG CANCER EXTENSIVE STAGE
     Dosage: ON DAY 1 AND 8 OF A 3-WEEKLY CYCLE
  2. CISPLATIN [Suspect]
     Indication: SMALL CELL LUNG CANCER EXTENSIVE STAGE
     Dosage: ON DAY 1 AND 8 OF A  3-WEEKLY CYCLE

REACTIONS (4)
  - Tuberculous pleurisy [None]
  - Metastases to central nervous system [None]
  - Small cell lung cancer extensive stage [None]
  - Malignant neoplasm progression [None]
